FAERS Safety Report 20798837 (Version 1)
Quarter: 2022Q2

REPORT INFORMATION
  Report Type: Spontaneous
  Country: US (occurrence: US)
  Receive Date: 20220507
  Receipt Date: 20220507
  Transmission Date: 20220721
  Serious: No
  Sender: FDA-Public Use
  Company Number: US-UNITED THERAPEUTICS-UNT-2022-003967

PATIENT
  Age: 55 Year
  Sex: Female
  Weight: 48.073 kg

DRUGS (6)
  1. REMODULIN [Suspect]
     Active Substance: TREPROSTINIL
     Indication: Pulmonary arterial hypertension
     Dosage: UNK, CONTINUING
     Route: 058
     Dates: start: 20210908
  2. REMODULIN [Suspect]
     Active Substance: TREPROSTINIL
     Dosage: 0.0195 ?G/KG, CONTINUING
     Route: 058
  3. REMODULIN [Suspect]
     Active Substance: TREPROSTINIL
     Dosage: 0.022 ?G/KG, CONTINUING
     Route: 058
  4. REMODULIN [Suspect]
     Active Substance: TREPROSTINIL
     Dosage: 0.0265 ?G/KG, CONTINUING
     Route: 058
  5. LECITHIN\POLOXAMER 407 [Suspect]
     Active Substance: LECITHIN\POLOXAMER 407
     Indication: Product used for unknown indication
     Dosage: UNK
     Route: 065
  6. POTASSIUM [Suspect]
     Active Substance: POTASSIUM
     Indication: Product used for unknown indication
     Dosage: UNK
     Route: 065

REACTIONS (18)
  - Infusion site pain [Not Recovered/Not Resolved]
  - Drug hypersensitivity [Unknown]
  - Infusion site warmth [Unknown]
  - Infusion site discharge [Unknown]
  - Infusion site erythema [Unknown]
  - Infusion site induration [Unknown]
  - Visual impairment [Unknown]
  - Vision blurred [Unknown]
  - Diarrhoea [Unknown]
  - Headache [Unknown]
  - Incorrect dose administered [Unknown]
  - Disease progression [Unknown]
  - Gait disturbance [Unknown]
  - Infusion site pruritus [Not Recovered/Not Resolved]
  - Fatigue [Unknown]
  - Infusion site abscess [Unknown]
  - Administration site odour [Unknown]
  - Dental caries [Unknown]

NARRATIVE: CASE EVENT DATE: 20220201
